FAERS Safety Report 17734942 (Version 1)
Quarter: 2020Q2

REPORT INFORMATION
  Report Type: Spontaneous
  Country: US (occurrence: US)
  Receive Date: 20200501
  Receipt Date: 20200501
  Transmission Date: 20200714
  Serious: Yes (Other)
  Sender: FDA-Public Use
  Company Number: US-TORRENT-00009064

PATIENT
  Sex: Female
  Weight: 68 kg

DRUGS (1)
  1. CITALOPRAM [Suspect]
     Active Substance: CITALOPRAM HYDROBROMIDE
     Indication: DEPRESSION
     Dosage: CUT DOWN THE DOSE TO 10 MG DAILY
     Route: 048
     Dates: start: 2018

REACTIONS (18)
  - Frustration tolerance decreased [Unknown]
  - Disturbance in attention [Unknown]
  - Product dose omission [Unknown]
  - Insomnia [Unknown]
  - Somnolence [Not Recovered/Not Resolved]
  - Feeling abnormal [Not Recovered/Not Resolved]
  - Blister [Unknown]
  - Orgasm abnormal [Recovered/Resolved]
  - Fatigue [Not Recovered/Not Resolved]
  - Withdrawal syndrome [Unknown]
  - Rash [Unknown]
  - Intentional product use issue [Unknown]
  - Mental impairment [Unknown]
  - Paraesthesia [Not Recovered/Not Resolved]
  - Palpitations [Not Recovered/Not Resolved]
  - Drug dependence [Recovered/Resolved]
  - Headache [Unknown]
  - Head discomfort [Not Recovered/Not Resolved]

NARRATIVE: CASE EVENT DATE: 2018
